FAERS Safety Report 7613849 (Version 2)
Quarter: 2014Q3

REPORT INFORMATION
  Report Type: Spontaneous
  Country: IT (occurrence: None)
  Receive Date: 20100917
  Receipt Date: 20140822
  Transmission Date: 20150326
  Serious: Yes (Life-Threatening)
  Sender: FDA-Public Use
  Company Number: 693606

PATIENT
  Age: 73 Year
  Sex: Female

DRUGS (8)
  1. LANTUS [Concomitant]
     Active Substance: INSULIN GLARGINE
  2. ACTRAPID [Concomitant]
     Active Substance: INSULIN HUMAN
  3. (ANTRA /00661203/) [Concomitant]
  4. VANCOMYCIN HYDROCHLORIDE. [Suspect]
     Active Substance: VANCOMYCIN HYDROCHLORIDE
     Indication: STAPHYLOCOCCAL SEPSIS
     Dosage: 2 G GRAMS(S), INTRAVENOUS
     Route: 042
     Dates: start: 20100629, end: 20100715
  5. (CLEXANE) [Concomitant]
     Active Substance: ENOXAPARIN SODIUM
  6. (ENAPREN) [Concomitant]
  7. CONGRESCOR [Concomitant]
  8. NORVASC [Concomitant]
     Active Substance: AMLODIPINE BESYLATE

REACTIONS (4)
  - Alanine aminotransferase increased [None]
  - Gamma-glutamyltransferase increased [None]
  - Aspartate aminotransferase increased [None]
  - Pancytopenia [None]

NARRATIVE: CASE EVENT DATE: 20100719
